FAERS Safety Report 9398961 (Version 1)
Quarter: 2013Q3

REPORT INFORMATION
  Report Type: Spontaneous
  Country: ES (occurrence: ES)
  Receive Date: 20130712
  Receipt Date: 20130712
  Transmission Date: 20140515
  Serious: Yes (Life-Threatening, Hospitalization, Other)
  Sender: FDA-Public Use
  Company Number: ES-ASTRAZENECA-2013SE51721

PATIENT
  Age: 13 Year
  Sex: Female

DRUGS (1)
  1. SEROQUEL PROLONG [Suspect]
     Indication: SUICIDE ATTEMPT
     Dosage: 10 TABLETS, ONCE/SINGLE ADMINISTRATION
     Route: 048
     Dates: start: 20130612, end: 20130612

REACTIONS (7)
  - Intentional overdose [Unknown]
  - Suicide attempt [Unknown]
  - Delirium [Recovered/Resolved]
  - Gait disturbance [Recovered/Resolved]
  - Hallucination [Recovered/Resolved]
  - Delusion [Unknown]
  - Somnolence [Recovered/Resolved]
